FAERS Safety Report 6680352 (Version 2)
Quarter: 2013Q2

REPORT INFORMATION
  Report Type: Spontaneous
  Country: US (occurrence: US)
  Receive Date: 20080625
  Receipt Date: 20130515
  Transmission Date: 20140414
  Serious: No
  Sender: FDA-Public Use
  Company Number: US-ASTRAZENECA-2007UW21297

PATIENT
  Age: 64 Year
  Sex: Female

DRUGS (5)
  1. PULMICORT FLEXHALER [Suspect]
     Indication: ASTHMA
     Dosage: 180 MCG, 2 PUFF , BID
     Route: 055
     Dates: start: 20070901
  2. RHINOCORT AQUA [Suspect]
     Indication: RHINITIS ALLERGIC
     Route: 045
  3. AVALIDE [Concomitant]
  4. PRILOSEC [Concomitant]
  5. RAQ [Concomitant]

REACTIONS (5)
  - Fatigue [Unknown]
  - Burning sensation [Unknown]
  - Multiple allergies [Unknown]
  - Asthma [Unknown]
  - Nasopharyngitis [Unknown]
